FAERS Safety Report 6258475-1 (Version None)
Quarter: 2009Q3

REPORT INFORMATION
  Report Type: 
  Country: None (occurrence: None)
  Receive Date: 20090702
  Receipt Date: 20090616
  Transmission Date: 20100115
  Serious: Yes (Hospitalization, Disabling)
  Sender: FDA-Public Use
  Company Number: DSA_33932_2009

PATIENT
  Sex: Female

DRUGS (8)
  1. ATIVAN [Suspect]
     Indication: MAJOR DEPRESSION
     Dosage: (DF)
  2. DEPAKOTE [Suspect]
     Indication: MAJOR DEPRESSION
     Dosage: (DF)
  3. LIOTHYRONINE SODIUM [Suspect]
     Indication: DRUG USE FOR UNKNOWN INDICATION
     Dosage: (12.5 UG QD)
  4. LITHIUM [Suspect]
     Indication: DEPRESSION
     Dosage: (DF)
  5. GABAPENTIN [Suspect]
     Indication: DEPRESSION
     Dosage: (DF)
  6. PAXIL [Suspect]
     Indication: DEPRESSION
     Dosage: (1 DF BID ORAL)
     Route: 048
     Dates: start: 19980101, end: 20000101
  7. SERZONE [Suspect]
     Indication: DEPRESSION
     Dosage: (DF)
  8. LEVOTHYROXINE SODIUM [Suspect]
     Indication: DRUG USE FOR UNKNOWN INDICATION
     Dosage: (DF)

REACTIONS (5)
  - DRUG INEFFECTIVE [None]
  - HYPERSENSITIVITY [None]
  - HYPERSOMNIA [None]
  - LOSS OF CONSCIOUSNESS [None]
  - WEIGHT INCREASED [None]
